FAERS Safety Report 24955176 (Version 2)
Quarter: 2025Q1

REPORT INFORMATION
  Report Type: Spontaneous
  Country: IT (occurrence: IT)
  Receive Date: 20250211
  Receipt Date: 20250214
  Transmission Date: 20250409
  Serious: Yes (Hospitalization)
  Sender: BIOGEN
  Company Number: IT-BIOGEN-2024BI01290293

PATIENT

DRUGS (1)
  1. SKYCLARYS [Suspect]
     Active Substance: OMAVELOXOLONE
     Indication: Friedreich^s ataxia
     Route: 050

REACTIONS (3)
  - Cardiac disorder [Unknown]
  - Dyspnoea [Unknown]
  - Gastrointestinal disorder [Unknown]
